FAERS Safety Report 8928555 (Version 1)
Quarter: 2012Q4

REPORT INFORMATION
  Report Type: Report from Study
  Country: FR (occurrence: FR)
  Receive Date: 20121128
  Receipt Date: 20121128
  Transmission Date: 20130627
  Serious: Yes (Hospitalization)
  Sender: FDA-Public Use
  Company Number: PHHO2012FR004720

PATIENT
  Age: 72 Year
  Sex: Male

DRUGS (3)
  1. NEORAL [Suspect]
     Indication: TRANSPLANT REJECTION
     Dosage: 220 mg, QD
     Route: 048
     Dates: start: 20120129
  2. CELLCEPT [Suspect]
     Indication: TRANSPLANT REJECTION
     Dosage: 3 g, QD
     Route: 048
     Dates: start: 20120129
  3. SOLUPRED [Suspect]
     Indication: TRANSPLANT REJECTION
     Dosage: 5 mg, QD
     Route: 048
     Dates: start: 20120204

REACTIONS (2)
  - Pneumonia bacterial [Recovered/Resolved]
  - Dyspnoea [Not Recovered/Not Resolved]
